FAERS Safety Report 25395446 (Version 1)
Quarter: 2025Q2

REPORT INFORMATION
  Report Type: Spontaneous
  Country: US (occurrence: US)
  Receive Date: 20250604
  Receipt Date: 20250604
  Transmission Date: 20250717
  Serious: No
  Sender: ALEXION PHARMACEUTICALS
  Company Number: US-AstraZeneca-2024-204214

PATIENT
  Age: 66 Year

DRUGS (1)
  1. AIRSUPRA [Suspect]
     Active Substance: ALBUTEROL SULFATE\BUDESONIDE

REACTIONS (4)
  - Drug dose omission by device [Unknown]
  - Incorrect dose administered [Unknown]
  - Device malfunction [Unknown]
  - Device delivery system issue [Unknown]
